FAERS Safety Report 14659086 (Version 1)
Quarter: 2018Q1

REPORT INFORMATION
  Report Type: Spontaneous
  Country: GB (occurrence: GB)
  Receive Date: 20180320
  Receipt Date: 20180320
  Transmission Date: 20180509
  Serious: Yes (Other)
  Sender: FDA-Public Use
  Company Number: GB-SUN PHARMACEUTICAL INDUSTRIES LTD-2018RR-167515

PATIENT
  Age: 55 Year
  Sex: Female
  Weight: 69.85 kg

DRUGS (1)
  1. LANSOPRAZOLE. [Suspect]
     Active Substance: LANSOPRAZOLE
     Indication: PRODUCT USED FOR UNKNOWN INDICATION
     Dosage: 30 MG, UNK
     Route: 048
     Dates: start: 20180218, end: 20180220

REACTIONS (4)
  - Poor quality sleep [Recovering/Resolving]
  - Confusional state [Recovering/Resolving]
  - Sleep talking [Unknown]
  - Anxiety [Unknown]

NARRATIVE: CASE EVENT DATE: 20180218
